FAERS Safety Report 23897920 (Version 2)
Quarter: 2024Q2

REPORT INFORMATION
  Report Type: Spontaneous
  Country: LB (occurrence: None)
  Receive Date: 20240524
  Receipt Date: 20240621
  Transmission Date: 20240715
  Serious: Yes (Death, Other)
  Sender: FDA-Public Use
  Company Number: 2024A117582

PATIENT
  Age: 66 Year
  Sex: Female

DRUGS (4)
  1. OLAPARIB [Suspect]
     Active Substance: OLAPARIB
     Indication: Bladder cancer
     Route: 048
  2. TALAZOPARIB [Suspect]
     Active Substance: TALAZOPARIB
     Indication: Bladder cancer
     Dates: start: 202108
  3. TALAZOPARIB [Suspect]
     Active Substance: TALAZOPARIB
     Indication: Bladder cancer
     Dates: start: 202109, end: 202204
  4. DEXAMETHASONE [Concomitant]
     Active Substance: DEXAMETHASONE

REACTIONS (1)
  - Malignant neoplasm progression [Fatal]
